FAERS Safety Report 24849707 (Version 1)
Quarter: 2025Q1

REPORT INFORMATION
  Report Type: Spontaneous
  Country: US (occurrence: US)
  Receive Date: 20250116
  Receipt Date: 20250116
  Transmission Date: 20250409
  Serious: No
  Sender: Harrow Health
  Company Number: US-IMP-2025000033

PATIENT
  Sex: Male

DRUGS (2)
  1. VEVYE [Suspect]
     Active Substance: CYCLOSPORINE
     Indication: Product used for unknown indication
     Route: 047
  2. TIMOLOL [Concomitant]
     Active Substance: TIMOLOL
     Indication: Product used for unknown indication
     Route: 047

REACTIONS (2)
  - Intraocular pressure increased [Unknown]
  - Drug interaction [Unknown]
